FAERS Safety Report 8810279 (Version 2)
Quarter: 2012Q4

REPORT INFORMATION
  Report Type: 
  Country: AU (occurrence: AU)
  Receive Date: 20120926
  Receipt Date: 20121130
  Transmission Date: 20130627
  Serious: Yes (Other)
  Sender: FDA-Public Use
  Company Number: AU-009507513-1209AUS007621

PATIENT
  Age: 56 Year
  Sex: Male

DRUGS (1)
  1. VICTRELIS 200 MG [Suspect]
     Dosage: UNK
     Dates: start: 20120515, end: 20120909

REACTIONS (1)
  - Myocardial infarction [Unknown]
